FAERS Safety Report 8798658 (Version 1)
Quarter: 2012Q4

REPORT INFORMATION
  Report Type: 
  Country: KR (occurrence: KR)
  Receive Date: 20120917
  Receipt Date: 20120917
  Transmission Date: 20130627
  Serious: Yes (Hospitalization, Other)
  Sender: FDA-Public Use
  Company Number: KR-BAYER-2012-096336

PATIENT
  Age: 56 Year
  Sex: Male

DRUGS (7)
  1. ACETYLSALICYLIC ACID({=100 MG) [Suspect]
     Dosage: Daily dose 100 mg
  2. ACETYLSALICYLIC ACID({=100 MG) [Suspect]
     Dosage: Daily dose 300 mg
  3. ACETYLSALICYLIC ACID({=100 MG) [Suspect]
     Dosage: Daily dose 100 mg
  4. DILTIAZEM [Concomitant]
     Dosage: Daily dose 90 mg
  5. ISOSORBIDE MONONITRATE [Concomitant]
     Dosage: 20 mg, BID
  6. CANDESARTAN [Concomitant]
     Dosage: Daily dose 16 mg
  7. PACLITAXEL W/CARBOPLATIN [Concomitant]
     Indication: CHEMOTHERAPY

REACTIONS (1)
  - Thrombosis in device [Recovered/Resolved]
